FAERS Safety Report 24527039 (Version 1)
Quarter: 2024Q4

REPORT INFORMATION
  Report Type: Report from Study
  Country: CN (occurrence: CN)
  Receive Date: 20241021
  Receipt Date: 20241021
  Transmission Date: 20250114
  Serious: Yes (Death, Other)
  Sender: GILEAD
  Company Number: CN-GILEAD-2024-0691314

PATIENT
  Age: 39 Year
  Sex: Female

DRUGS (1)
  1. SACITUZUMAB GOVITECAN-HZIY [Suspect]
     Active Substance: SACITUZUMAB GOVITECAN-HZIY
     Indication: Triple negative breast cancer
     Dosage: 3 VIALS/TIME,, 2 TIMES PER COURSE OF TREATMENT
     Route: 041
     Dates: start: 202408

REACTIONS (2)
  - Condition aggravated [Fatal]
  - Drug effect less than expected [Unknown]

NARRATIVE: CASE EVENT DATE: 20240101
